FAERS Safety Report 5701407-2 (Version None)
Quarter: 2008Q2

REPORT INFORMATION
  Report Type: 
  Country: None (occurrence: None)
  Receive Date: 20080407
  Receipt Date: 20080326
  Transmission Date: 20081010
  Serious: Yes (Other)
  Sender: FDA-Public Use
  Company Number: DSU-2008-00352

PATIENT
  Age: 61 Year
  Sex: Female
  Weight: 64 kg

DRUGS (1)
  1. CHOLESTAGEL (COLESEVELAM HYDROCHLORIDE) (625 MILLIGRAM, TABLET) (COLES [Suspect]
     Indication: HYPERCHOLESTEROLAEMIA
     Dosage: 625 MG (625 MG, QD), PER ORAL
     Route: 048
     Dates: start: 20080204, end: 20080208

REACTIONS (2)
  - ANGINA PECTORIS [None]
  - BLOOD CREATINE PHOSPHOKINASE INCREASED [None]
